FAERS Safety Report 11373048 (Version 1)
Quarter: 2015Q3

REPORT INFORMATION
  Report Type: Spontaneous
  Country: US (occurrence: US)
  Receive Date: 20150811
  Receipt Date: 20150811
  Transmission Date: 20151125
  Serious: No
  Sender: FDA-Public Use
  Company Number: US-ELI_LILLY_AND_COMPANY-US201205000195

PATIENT
  Age: 40 Year
  Sex: Female
  Weight: 58.96 kg

DRUGS (5)
  1. TRACLEER [Concomitant]
     Active Substance: BOSENTAN
  2. TYVASO [Concomitant]
     Active Substance: TREPROSTINIL
     Indication: PULMONARY ARTERIAL HYPERTENSION
     Route: 055
  3. COUMADIN [Concomitant]
     Active Substance: WARFARIN SODIUM
  4. DIURETICS [Concomitant]
     Active Substance: UNSPECIFIED INGREDIENT
  5. ADCIRCA [Suspect]
     Active Substance: TADALAFIL
     Dosage: UNK

REACTIONS (3)
  - Headache [Unknown]
  - Abdominal discomfort [Unknown]
  - Intentional product misuse [Unknown]
